FAERS Safety Report 10478541 (Version 1)
Quarter: 2014Q3

REPORT INFORMATION
  Report Type: Spontaneous
  Country: US (occurrence: None)
  Receive Date: 20140925
  Receipt Date: 20140925
  Transmission Date: 20150326
  Serious: Yes (Other)
  Sender: FDA-Public Use
  Company Number: None

PATIENT
  Age: 68 Year
  Sex: Female
  Weight: 79.38 kg

DRUGS (1)
  1. BUPROPION HCL [Suspect]
     Active Substance: BUPROPION HYDROCHLORIDE
     Indication: DEPRESSION
     Dosage: 1 TABLET ONCE DAILY TAKEN BY MOUTH
     Route: 048

REACTIONS (10)
  - Depression [None]
  - Weight increased [None]
  - Product substitution issue [None]
  - Product quality issue [None]
  - Product odour abnormal [None]
  - Increased appetite [None]
  - Crying [None]
  - Drug effect decreased [None]
  - Asthenia [None]
  - Sleep disorder [None]

NARRATIVE: CASE EVENT DATE: 20140924
